FAERS Safety Report 10088836 (Version 1)
Quarter: 2014Q2

REPORT INFORMATION
  Report Type: Spontaneous
  Country: US (occurrence: US)
  Receive Date: 20140421
  Receipt Date: 20140421
  Transmission Date: 20141212
  Serious: Yes (Other)
  Sender: FDA-Public Use
  Company Number: US-JNJFOC-20140406757

PATIENT
  Age: 35 Year
  Sex: Male
  Weight: 63.5 kg

DRUGS (4)
  1. DURAGESIC [Suspect]
     Indication: MUSCLE SPASMS
     Route: 062
     Dates: start: 201401
  2. DURAGESIC [Suspect]
     Indication: MUSCLE SPASMS
     Route: 062
     Dates: end: 201401
  3. DURAGESIC [Suspect]
     Indication: PAIN
     Route: 062
     Dates: start: 201401
  4. DURAGESIC [Suspect]
     Indication: PAIN
     Route: 062
     Dates: end: 201401

REACTIONS (3)
  - Pain [Unknown]
  - Nerve compression [Unknown]
  - Electroconvulsive therapy [Unknown]
